FAERS Safety Report 19205872 (Version 1)
Quarter: 2021Q2

REPORT INFORMATION
  Report Type: Report from Study
  Country: CA (occurrence: CA)
  Receive Date: 20210503
  Receipt Date: 20210503
  Transmission Date: 20210717
  Serious: Yes (Other)
  Sender: FDA-Public Use
  Company Number: NVSC2021CA003629

PATIENT
  Age: 38 Year
  Sex: Female

DRUGS (3)
  1. AZATHIOPRINE. [Concomitant]
     Active Substance: AZATHIOPRINE
     Indication: PRODUCT USED FOR UNKNOWN INDICATION
     Dosage: UNK
     Route: 065
  2. ILARIS [Suspect]
     Active Substance: CANAKINUMAB
     Indication: FAMILIAL MEDITERRANEAN FEVER
     Dosage: 150 MG, 8 WEEKS
     Route: 058
     Dates: start: 20210415
  3. COLCHICINE. [Suspect]
     Active Substance: COLCHICINE
     Indication: PRODUCT USED FOR UNKNOWN INDICATION
     Dosage: 0.6 MG, BID
     Route: 065

REACTIONS (12)
  - Pleurisy [Unknown]
  - Serum amyloid A protein increased [Unknown]
  - Pain [Unknown]
  - Ill-defined disorder [Unknown]
  - Serositis [Unknown]
  - Abdominal pain [Unknown]
  - Tuberculin test positive [Unknown]
  - Pyrexia [Unknown]
  - Fatigue [Unknown]
  - Drug intolerance [Unknown]
  - Arthritis [Unknown]
  - Rash [Unknown]

NARRATIVE: CASE EVENT DATE: 20210224
